FAERS Safety Report 4449200-5 (Version None)
Quarter: 2004Q3

REPORT INFORMATION
  Report Type: 
  Country: None (occurrence: None)
  Receive Date: 20040910
  Receipt Date: 20040830
  Transmission Date: 20050211
  Serious: No
  Sender: FDA-Public Use
  Company Number: 04H-163-0271953-00

PATIENT
  Age: 25 Year
  Sex: Female

DRUGS (3)
  1. MAGNESIUM SULFATE [Suspect]
     Indication: TOCOLYSIS
     Dosage: 6 GM, ONCE, INTRAVENOUS; SEE IMAGE
     Route: 042
  2. NIFEDIPINE [Suspect]
     Indication: TOCOLYSIS
     Dosage: 10 MG, ONCE, PER ORAL; SEE IMAGE
     Route: 048
  3. BETAMETHASONE [Concomitant]

REACTIONS (5)
  - BLOOD PRESSURE DECREASED [None]
  - COMPLICATIONS OF MATERNAL EXPOSURE TO THERAPEUTIC DRUGS [None]
  - DRUG INTERACTION [None]
  - HYPOCALCAEMIA [None]
  - TETANY [None]
